FAERS Safety Report 7014649-3 (Version None)
Quarter: 2010Q3

REPORT INFORMATION
  Report Type: 
  Country: None (occurrence: None)
  Receive Date: 20100924
  Receipt Date: 20100924
  Transmission Date: 20110219
  Serious: Yes (Hospitalization)
  Sender: FDA-Public Use
  Company Number: None

PATIENT
  Age: 62 Year
  Sex: Male

DRUGS (1)
  1. NEOMYCIN AND POLYMYXIN B SULFATE [Suspect]
     Dates: start: 20100526, end: 20100621

REACTIONS (1)
  - RASH [None]
